FAERS Safety Report 8601366-9 (Version None)
Quarter: 2012Q3

REPORT INFORMATION
  Report Type: 
  Country: None (occurrence: None)
  Receive Date: 20120817
  Receipt Date: 20120806
  Transmission Date: 20120928
  Serious: Yes (Hospitalization, Other)
  Sender: FDA-Public Use
  Company Number: FR-BRISTOL-MYERS SQUIBB COMPANY-16832834

PATIENT
  Age: 47 Year
  Sex: Female
  Weight: 44 kg

DRUGS (5)
  1. LUTENYL [Concomitant]
     Route: 048
     Dates: start: 20120201
  2. HYDROCORTISONE [Suspect]
     Route: 048
     Dates: start: 20110901
  3. FOLIC ACID [Concomitant]
     Route: 048
  4. AMLODIPINE BESYLATE [Concomitant]
     Route: 048
     Dates: start: 20120501
  5. LYSODREN [Suspect]
     Indication: ADRENOCORTICAL CARCINOMA
     Route: 048
     Dates: start: 20110901, end: 20120510

REACTIONS (2)
  - PELIOSIS HEPATIS [None]
  - GAMMA-GLUTAMYLTRANSFERASE INCREASED [None]
